FAERS Safety Report 4596874-4 (Version None)
Quarter: 2005Q1

REPORT INFORMATION
  Report Type: 
  Country: None (occurrence: None)
  Receive Date: 20050228
  Receipt Date: 20040714
  Transmission Date: 20050727
  Serious: Yes (Hospitalization)
  Sender: FDA-Public Use
  Company Number: 8493

PATIENT
  Age: 62 Year
  Sex: Male

DRUGS (2)
  1. METHOTREXATE [Suspect]
     Indication: CONGENITAL SYPHILITIC OSTEOCHONDRITIS
  2. PREDNISONE [Concomitant]

REACTIONS (5)
  - DYSPHAGIA [None]
  - FALL [None]
  - FEELING ABNORMAL [None]
  - PHARYNGOLARYNGEAL PAIN [None]
  - SPEECH DISORDER [None]
